FAERS Safety Report 8836983 (Version 1)
Quarter: 2012Q4

REPORT INFORMATION
  Report Type: 
  Country: DE (occurrence: DE)
  Receive Date: 20121012
  Receipt Date: 20121012
  Transmission Date: 20130627
  Serious: Yes (Hospitalization, Other)
  Sender: FDA-Public Use
  Company Number: DE-BAYER-2012-106506

PATIENT
  Age: 60 Year
  Sex: Male

DRUGS (2)
  1. ANTIHEMOPHILIC FACTOR VIII (RECOMBINANT), SUCROSE FORMULATED [Suspect]
     Indication: COLONOSCOPY
     Dosage: 35 iu/kg, ONCE
     Dates: start: 201101
  2. ANTIHEMOPHILIC FACTOR VIII (RECOMBINANT), SUCROSE FORMULATED [Suspect]
     Indication: TRAUMATIC HAEMATOMA
     Dosage: 35 iu/kg, UNK
     Dates: start: 201103

REACTIONS (2)
  - Anti factor VIII antibody positive [Recovered/Resolved]
  - Muscle haemorrhage [Recovered/Resolved]
